FAERS Safety Report 7148768-8 (Version None)
Quarter: 2010Q4

REPORT INFORMATION
  Report Type: 
  Country: None (occurrence: None)
  Receive Date: 20101124
  Receipt Date: 20101118
  Transmission Date: 20110411
  Serious: Yes (Death, Other)
  Sender: FDA-Public Use
  Company Number: 2010US004750

PATIENT

DRUGS (2)
  1. MYCAMINE [Suspect]
     Indication: SYSTEMIC CANDIDA
  2. CHEMOTHERAPEUTICS NOS [Concomitant]

REACTIONS (2)
  - IMMUNODEFICIENCY [None]
  - PANCYTOPENIA [None]
